FAERS Safety Report 25931938 (Version 3)
Quarter: 2025Q4

REPORT INFORMATION
  Report Type: Spontaneous
  Country: US (occurrence: US)
  Receive Date: 20251016
  Receipt Date: 20251210
  Transmission Date: 20260118
  Serious: No
  Sender: PFIZER
  Company Number: US-PFIZER INC-202500203488

PATIENT
  Age: 12 Year
  Sex: Male

DRUGS (1)
  1. GENOTROPIN [Suspect]
     Active Substance: SOMATROPIN
     Dosage: 0.6MG FOR 2 WEEKS, THEN 1.2MG FOR 2 WEEKS, THEN 1.8MG FOR 2 WEEKS,

REACTIONS (2)
  - Device information output issue [Unknown]
  - Device leakage [Unknown]
